FAERS Safety Report 12768362 (Version 1)
Quarter: 2016Q3

REPORT INFORMATION
  Report Type: Other
  Country: US (occurrence: US)
  Receive Date: 20160921
  Receipt Date: 20160921
  Transmission Date: 20161109
  Serious: Yes (Other)
  Sender: FDA-Public Use
  Company Number: US-FRI-1000087647

PATIENT
  Age: 36 Year
  Sex: Male

DRUGS (9)
  1. DOXYCYCLINE. [Concomitant]
     Active Substance: DOXYCYCLINE
  2. DAPTOMYCIN. [Concomitant]
     Active Substance: DAPTOMYCIN
  3. LINEZOLID. [Concomitant]
     Active Substance: LINEZOLID
  4. CEFTAROLINE FOSAMIL [Suspect]
     Active Substance: CEFTAROLINE FOSAMIL
     Indication: CEREBRAL INFARCTION
  5. GENTAMICIN. [Concomitant]
     Active Substance: GENTAMICIN
     Route: 042
  6. CEFTAROLINE FOSAMIL [Suspect]
     Active Substance: CEFTAROLINE FOSAMIL
     Indication: ENDOCARDITIS STAPHYLOCOCCAL
     Dosage: 1800 MG
  7. CEFTAROLINE FOSAMIL [Suspect]
     Active Substance: CEFTAROLINE FOSAMIL
     Indication: BRAIN ABSCESS
  8. RIFAMPICIN [Concomitant]
     Active Substance: RIFAMPIN
  9. CIPROFLOXACIN. [Concomitant]
     Active Substance: CIPROFLOXACIN

REACTIONS (3)
  - Neutropenia [Recovered/Resolved]
  - Off label use [Recovered/Resolved]
  - Enterobacter bacteraemia [Unknown]
